FAERS Safety Report 24316506 (Version 2)
Quarter: 2024Q4

REPORT INFORMATION
  Report Type: Spontaneous
  Country: CA (occurrence: CA)
  Receive Date: 20240913
  Receipt Date: 20241002
  Transmission Date: 20250115
  Serious: Yes (Other)
  Sender: AMERICAN REGENT
  Company Number: CA-AMERICAN REGENT INC-2024003474

PATIENT
  Age: 30 Year
  Sex: Female

DRUGS (2)
  1. VENOFER [Suspect]
     Active Substance: IRON SUCROSE
     Indication: Anaemia of pregnancy
     Dosage: 300 MG IN A 250 ML NORMAL SALINE BAG, RATE 145 ML:/HR
  2. VENOFER [Suspect]
     Active Substance: IRON SUCROSE
     Dosage: 300 MG IN A 250 ML NORMAL SALINE BAG, RATE 145 ML:/HR
     Dates: start: 20240508, end: 20240508

REACTIONS (3)
  - Maternal exposure during pregnancy [Unknown]
  - Burning sensation [Recovered/Resolved]
  - Erythema [Unknown]

NARRATIVE: CASE EVENT DATE: 20240508
